FAERS Safety Report 8133510-4 (Version None)
Quarter: 2012Q1

REPORT INFORMATION
  Report Type: 
  Country: None (occurrence: None)
  Receive Date: 20120103
  Receipt Date: 20111111
  Transmission Date: 20120608
  Serious: No
  Sender: FDA-Public Use
  Company Number: AE-2011-003338

PATIENT
  Age: 64 Year
  Sex: Male
  Weight: 75.2971 kg

DRUGS (6)
  1. PEGASYS [Concomitant]
  2. LORAZEPAM [Concomitant]
  3. INCIVEK [Suspect]
     Dosage: 2250 MG (750 MG,1 IN 8 HR),ORAL
     Route: 048
     Dates: start: 20111019
  4. COPEGUS (RIBAVRIN) [Concomitant]
  5. CODEINE SULFATE [Concomitant]
  6. METHADONE HCL [Concomitant]

REACTIONS (2)
  - ASTHENIA [None]
  - HEADACHE [None]
